FAERS Safety Report 8437903-7 (Version None)
Quarter: 2012Q2

REPORT INFORMATION
  Report Type: 
  Country: None (occurrence: None)
  Receive Date: 20120614
  Receipt Date: 20120516
  Transmission Date: 20120825
  Serious: No
  Sender: FDA-Public Use
  Company Number: US-AMGEN-USASP2012031339

PATIENT
  Sex: Female

DRUGS (5)
  1. TOPROL-XL [Concomitant]
  2. PROLIA [Suspect]
     Indication: OSTEOPOROSIS POSTMENOPAUSAL
     Dosage: 60 MG, Q6MO
     Dates: start: 20110501
  3. VITAMIN D [Concomitant]
     Dosage: 1 IU, QD
  4. CALCIUM [Concomitant]
  5. ASPIRIN [Concomitant]

REACTIONS (3)
  - INTERVERTEBRAL DISC DEGENERATION [None]
  - CYSTITIS [None]
  - VERTEBRAL FORAMINAL STENOSIS [None]
